FAERS Safety Report 4375860-3 (Version None)
Quarter: 2004Q2

REPORT INFORMATION
  Report Type: 
  Country: None (occurrence: None)
  Receive Date: 20040607
  Receipt Date: 20040525
  Transmission Date: 20050107
  Serious: Yes (Hospitalization)
  Sender: FDA-Public Use
  Company Number: FR-JNJFOC-20040505696

PATIENT
  Age: 20 Year
  Sex: Male

DRUGS (2)
  1. HALDOL [Suspect]
     Dosage: 4 DOSE (S), 1 IN 28 DAY
  2. TERCIAN (CYAMEMAZINE) [Concomitant]

REACTIONS (3)
  - INTENTIONAL OVERDOSE [None]
  - RHABDOMYOLYSIS [None]
  - SUICIDE ATTEMPT [None]
